FAERS Safety Report 16939459 (Version 3)
Quarter: 2023Q2

REPORT INFORMATION
  Report Type: Spontaneous
  Country: IT (occurrence: IT)
  Receive Date: 20191021
  Receipt Date: 20230607
  Transmission Date: 20230722
  Serious: Yes (Other)
  Sender: FDA-Public Use
  Company Number: IT-BAXTER-2019BAX020843

PATIENT
  Age: 57 Year
  Sex: Male
  Weight: 88 kg

DRUGS (6)
  1. DOXORUBICIN [Suspect]
     Active Substance: DOXORUBICIN
     Indication: Hodgkin^s disease
     Dosage: THERAPY ONGOING
     Route: 042
     Dates: start: 20181102, end: 20181102
  2. DOXORUBICIN HYDROCHLORIDE [Suspect]
     Active Substance: DOXORUBICIN HYDROCHLORIDE
     Indication: Hodgkin^s disease
     Dosage: 25 MG/M2,QD
     Route: 042
     Dates: start: 20181102, end: 20181102
  3. DACARBAZINE [Concomitant]
     Active Substance: DACARBAZINE
     Indication: Hodgkin^s disease
     Dosage: 375 MG/M2,QD
     Route: 042
     Dates: start: 20181102, end: 20181102
  4. METHYLPREDNISOLONE [Concomitant]
     Active Substance: METHYLPREDNISOLONE
     Indication: Hodgkin^s disease
     Dosage: 40 MG/M2,QD
     Route: 042
     Dates: start: 20181102, end: 20181102
  5. VINBLASTINE SULFATE [Concomitant]
     Active Substance: VINBLASTINE SULFATE
     Indication: Hodgkin^s disease
     Dosage: 6 MG/M2,QD
     Route: 040
     Dates: start: 20181102, end: 20181102
  6. BLEOMYCIN SULFATE [Concomitant]
     Active Substance: BLEOMYCIN SULFATE
     Indication: Hodgkin^s disease
     Dosage: 20 IU (INTERNATIONAL UNIT),QD
     Route: 040
     Dates: start: 20181102, end: 20181102

REACTIONS (1)
  - Hepatotoxicity [Recovered/Resolved]

NARRATIVE: CASE EVENT DATE: 20181103
